FAERS Safety Report 9530612 (Version 1)
Quarter: 2013Q3

REPORT INFORMATION
  Report Type: Spontaneous
  Country: US (occurrence: US)
  Receive Date: 20130918
  Receipt Date: 20130918
  Transmission Date: 20140515
  Serious: Yes (Hospitalization)
  Sender: FDA-Public Use
  Company Number: US-AMGEN-USASP2013063962

PATIENT
  Age: 85 Year
  Sex: Female

DRUGS (9)
  1. PROLIA [Suspect]
     Indication: OSTEOARTHRITIS
     Dosage: UNK
     Route: 065
     Dates: start: 201208
  2. ZOLOFT [Concomitant]
  3. TRAMADOL [Concomitant]
  4. PRAVASTATIN [Concomitant]
  5. VITAMIN B12                        /00056201/ [Concomitant]
     Dosage: UNK UNK, QMO
  6. ONE A DAY                          /02262701/ [Concomitant]
  7. CALCIUM WITH D3 [Concomitant]
  8. FISH OIL [Concomitant]
  9. BABY ASPIRIN [Concomitant]

REACTIONS (10)
  - Malaise [Recovering/Resolving]
  - Atrial fibrillation [Unknown]
  - Hypertension [Recovered/Resolved]
  - Local swelling [Unknown]
  - Musculoskeletal stiffness [Unknown]
  - Mass [Unknown]
  - Nausea [Unknown]
  - Flushing [Unknown]
  - Erythema [Unknown]
  - Pain in extremity [Unknown]
